FAERS Safety Report 10084779 (Version 3)
Quarter: 2014Q2

REPORT INFORMATION
  Report Type: Spontaneous
  Country: DE (occurrence: DE)
  Receive Date: 20140417
  Receipt Date: 20140505
  Transmission Date: 20141212
  Serious: Yes (Other)
  Sender: FDA-Public Use
  Company Number: DE-AMGEN-DEUSP2014021665

PATIENT
  Age: 48 Year
  Sex: Male
  Weight: 76 kg

DRUGS (7)
  1. VECTIBIX [Suspect]
     Indication: COLORECTAL CANCER METASTATIC
     Dosage: 6 MG, DAY1/ DAY 15
     Route: 042
     Dates: start: 20140304
  2. VECTIBIX [Suspect]
     Indication: METASTASES TO BONE
  3. XGEVA [Suspect]
     Indication: METASTASES TO BONE
     Dosage: 120 MG, DAY 1/29 DAY
     Route: 058
     Dates: start: 20131023
  4. 5 FU [Suspect]
     Indication: PRODUCT USED FOR UNKNOWN INDICATION
     Dosage: 400 MG/M2, D1+2/DL5
     Route: 040
     Dates: start: 20140304, end: 20140407
  5. FOLFIRI [Suspect]
     Indication: COLORECTAL CANCER METASTATIC
     Dosage: 180 MG/M2, D1/D15
     Route: 042
     Dates: start: 20140304, end: 20140407
  6. FOLFIRI [Suspect]
     Indication: METASTASES TO BONE
  7. FOLIC ACID [Concomitant]
     Dosage: 200 MG/M2, DL+2/DL5
     Route: 042
     Dates: start: 20140304, end: 20140407

REACTIONS (3)
  - Rash maculo-papular [Recovered/Resolved]
  - Rash pruritic [Unknown]
  - Superinfection [Unknown]
